FAERS Safety Report 4832018-9 (Version None)
Quarter: 2005Q4

REPORT INFORMATION
  Report Type: 
  Country: None (occurrence: None)
  Receive Date: 20051116
  Receipt Date: 20051031
  Transmission Date: 20060501
  Serious: Yes (Hospitalization)
  Sender: FDA-Public Use
  Company Number: 8013099

PATIENT
  Age: 43 Year
  Sex: Female

DRUGS (6)
  1. LEVETIRACETAM [Suspect]
     Indication: CONVULSION
     Dosage: PO
     Route: 048
     Dates: start: 20030701, end: 20030701
  2. LEVETIRACETAM [Suspect]
     Indication: CONVULSION
     Dosage: 1000 MG/ D PO, FEW DAYS
     Route: 048
     Dates: start: 20040101
  3. OXCARBAZEPINE [Concomitant]
  4. GABAPENTIN [Concomitant]
  5. TOPIRAMATE [Concomitant]
  6. CLOBAZAM [Concomitant]

REACTIONS (28)
  - AGITATION [None]
  - ANOREXIA [None]
  - CATATONIA [None]
  - COGNITIVE DISORDER [None]
  - COMMUNICATION DISORDER [None]
  - CONFUSIONAL STATE [None]
  - DEPENDENT PERSONALITY DISORDER [None]
  - DIET REFUSAL [None]
  - FEAR [None]
  - GRAND MAL CONVULSION [None]
  - HALLUCINATION, AUDITORY [None]
  - HALLUCINATION, VISUAL [None]
  - HYPERVIGILANCE [None]
  - IDEAS OF REFERENCE [None]
  - INTELLIGENCE TEST ABNORMAL [None]
  - MORBID THOUGHTS [None]
  - MUSCULOSKELETAL STIFFNESS [None]
  - MUTISM [None]
  - PARANOIA [None]
  - POSTURING [None]
  - PSYCHOMOTOR RETARDATION [None]
  - PSYCHOTIC DISORDER [None]
  - REFUSAL OF TREATMENT BY PATIENT [None]
  - SOCIAL AVOIDANT BEHAVIOUR [None]
  - STRESS [None]
  - THERAPY NON-RESPONDER [None]
  - URINARY INCONTINENCE [None]
  - WAXY FLEXIBILITY [None]
